FAERS Safety Report 23363299 (Version 1)
Quarter: 2024Q1

REPORT INFORMATION
  Report Type: Spontaneous
  Country: CN (occurrence: CN)
  Receive Date: 20240103
  Receipt Date: 20240103
  Transmission Date: 20240409
  Serious: Yes (Disabling, Other)
  Sender: FDA-Public Use
  Company Number: CN-Eisai-EC-2024-156118

PATIENT
  Age: 47 Year
  Sex: Female
  Weight: 50 kg

DRUGS (4)
  1. ERIBULIN [Suspect]
     Active Substance: ERIBULIN
     Indication: Invasive breast carcinoma
     Route: 042
     Dates: start: 20231217, end: 20231217
  2. ERIBULIN [Suspect]
     Active Substance: ERIBULIN
     Indication: Breast cancer metastatic
  3. SINTILIMAB [Suspect]
     Active Substance: SINTILIMAB
     Indication: Invasive breast carcinoma
     Route: 041
     Dates: start: 20231217, end: 20231217
  4. SINTILIMAB [Suspect]
     Active Substance: SINTILIMAB
     Indication: Breast cancer metastatic

REACTIONS (1)
  - Myelosuppression [Recovering/Resolving]

NARRATIVE: CASE EVENT DATE: 20231222
